FAERS Safety Report 17278597 (Version 1)
Quarter: 2020Q1

REPORT INFORMATION
  Report Type: Spontaneous
  Country: US (occurrence: US)
  Receive Date: 20200116
  Receipt Date: 20200116
  Transmission Date: 20200409
  Serious: Yes (Hospitalization)
  Sender: FDA-Public Use
  Company Number: US-ASTRAZENECA-2020SE06565

PATIENT
  Age: 502 Day
  Sex: Male

DRUGS (14)
  1. EUCERIN [Concomitant]
     Active Substance: ENSULIZOLE\EUCERIN\OCTINOXATE\OCTISALATE\TITANIUM DIOXIDE\ZINC OXIDE
  2. FLOVENT HFA [Concomitant]
     Active Substance: FLUTICASONE PROPIONATE
  3. METOLAZONE. [Concomitant]
     Active Substance: METOLAZONE
  4. PROPRANOLOL [Suspect]
     Active Substance: PROPRANOLOL HYDROCHLORIDE
     Route: 065
  5. FAMOTIDINE. [Concomitant]
     Active Substance: FAMOTIDINE
  6. FUROSEMIDE. [Concomitant]
     Active Substance: FUROSEMIDE
  7. LEVOTHYROXIN [Concomitant]
     Active Substance: LEVOTHYROXINE
  8. SYNAGIS [Suspect]
     Active Substance: PALIVIZUMAB
     Indication: HYPOXIA
     Route: 030
     Dates: start: 20181228
  9. ALBUTEROL. [Concomitant]
     Active Substance: ALBUTEROL
  10. IBUPROFEN. [Concomitant]
     Active Substance: IBUPROFEN
  11. POLY-VI-SOL [Concomitant]
     Active Substance: VITAMINS
  12. ASPIRIN. [Concomitant]
     Active Substance: ASPIRIN
  13. A-HYDROCORT [Concomitant]
     Active Substance: HYDROCORTISONE SODIUM SUCCINATE
  14. SOD CHLOR NEB 7% [Concomitant]

REACTIONS (1)
  - Respiratory syncytial virus infection [Unknown]

NARRATIVE: CASE EVENT DATE: 20191215
